FAERS Safety Report 21306185 (Version 1)
Quarter: 2022Q3

REPORT INFORMATION
  Report Type: Spontaneous
  Country: US (occurrence: None)
  Receive Date: 20220907
  Receipt Date: 20220907
  Transmission Date: 20221027
  Serious: No
  Sender: FDA-Public Use
  Company Number: None

PATIENT
  Age: 82 Year
  Sex: Female
  Weight: 70.76 kg

DRUGS (14)
  1. TEMOZOLOMIDE [Suspect]
     Active Substance: TEMOZOLOMIDE
     Indication: Colon cancer
     Dosage: FREQUENCY : DAILY;?
     Route: 048
  2. ACYCLOVIR [Concomitant]
  3. BIOTIN [Concomitant]
     Active Substance: BIOTIN
  4. CLINDAMYCIN [Concomitant]
     Active Substance: CLINDAMYCIN
  5. CRANBERRY [Concomitant]
  6. DECADRON [Concomitant]
  7. LEVETIRACETAM [Concomitant]
  8. LEXAPRO [Concomitant]
     Active Substance: ESCITALOPRAM OXALATE
  9. METOPROLOL [Concomitant]
  10. MINERALS\VITAMINS [Concomitant]
     Active Substance: MINERALS\VITAMINS
  11. ROSUVASTATIN [Concomitant]
  12. TYLENOL [Concomitant]
  13. VITAMIN B12 [Concomitant]
  14. ZOFRAN [Concomitant]

REACTIONS (1)
  - Hospice care [None]
